FAERS Safety Report 19229446 (Version 7)
Quarter: 2021Q2

REPORT INFORMATION
  Report Type: Spontaneous
  Country: DE (occurrence: DE)
  Receive Date: 20210507
  Receipt Date: 20210623
  Transmission Date: 20210717
  Serious: Yes (Hospitalization, Disabling, Other)
  Sender: FDA-Public Use
  Company Number: DE-ROCHE-2815247

PATIENT
  Age: 49 Year
  Sex: Male
  Weight: 85 kg

DRUGS (36)
  1. GAZYVARO [Suspect]
     Active Substance: OBINUTUZUMAB
     Route: 042
     Dates: start: 20150113
  2. FLUDARABINE [Suspect]
     Active Substance: FLUDARABINE PHOSPHATE
     Route: 042
     Dates: start: 20150113
  3. CYCLOPHOSPHAMID [Suspect]
     Active Substance: CYCLOPHOSPHAMIDE
     Indication: CHRONIC LYMPHOCYTIC LEUKAEMIA
     Route: 065
     Dates: start: 20141118, end: 20150407
  4. KEPPRA [Suspect]
     Active Substance: LEVETIRACETAM
     Indication: EPILEPSY
     Route: 065
     Dates: start: 20160727, end: 20170710
  5. CIPROFLOXACIN. [Concomitant]
     Active Substance: CIPROFLOXACIN
  6. ALLOPURINOL. [Concomitant]
     Active Substance: ALLOPURINOL
  7. FLUDARABINE [Suspect]
     Active Substance: FLUDARABINE PHOSPHATE
     Dosage: 25 MG/M2
     Route: 042
     Dates: start: 20141216
  8. FLUDARABINE [Suspect]
     Active Substance: FLUDARABINE PHOSPHATE
     Route: 042
     Dates: start: 20150115
  9. CYCLOPHOSPHAMID [Suspect]
     Active Substance: CYCLOPHOSPHAMIDE
     Route: 042
     Dates: start: 20141216
  10. PRIVIGEN [Suspect]
     Active Substance: HUMAN IMMUNOGLOBULIN G
     Indication: CHRONIC LYMPHOCYTIC LEUKAEMIA
     Route: 065
     Dates: start: 20160323
  11. SOLU?DECORTIN H [Concomitant]
     Dates: start: 201411
  12. FLUDARABINE [Suspect]
     Active Substance: FLUDARABINE PHOSPHATE
     Route: 042
     Dates: start: 20150310
  13. FLUDARABINE [Suspect]
     Active Substance: FLUDARABINE PHOSPHATE
     Route: 042
     Dates: start: 20150312
  14. FLUDARABINE [Suspect]
     Active Substance: FLUDARABINE PHOSPHATE
     Dosage: 25 MG/M2
     Route: 042
     Dates: start: 201502
  15. FLUDARABINE [Suspect]
     Active Substance: FLUDARABINE PHOSPHATE
     Dosage: 25 MG/M2
     Route: 042
     Dates: start: 20150407
  16. ACICLOVIR [Suspect]
     Active Substance: ACYCLOVIR
     Indication: VARICELLA ZOSTER VIRUS INFECTION
     Route: 065
     Dates: start: 201509
  17. GAZYVARO [Suspect]
     Active Substance: OBINUTUZUMAB
     Route: 042
     Dates: start: 20141216
  18. AMPHOTERICIN [Concomitant]
     Active Substance: AMPHOTERICIN B
  19. JONOSTERIL [Concomitant]
  20. FLUDARABINE [Suspect]
     Active Substance: FLUDARABINE PHOSPHATE
     Dosage: 25 MG/M2
     Route: 042
     Dates: start: 20141119
  21. CYCLOPHOSPHAMID [Suspect]
     Active Substance: CYCLOPHOSPHAMIDE
     Route: 042
     Dates: start: 20141119
  22. KIOVIG [Suspect]
     Active Substance: HUMAN IMMUNOGLOBULIN G
     Indication: IMMUNOGLOBULINS DECREASED
     Route: 065
  23. CALCIUMFOLINAT [Concomitant]
     Active Substance: LEUCOVORIN CALCIUM
  24. GAZYVARO [Suspect]
     Active Substance: OBINUTUZUMAB
     Route: 042
     Dates: start: 20150310
  25. GAZYVARO [Suspect]
     Active Substance: OBINUTUZUMAB
     Route: 042
     Dates: start: 20150407
  26. FLUDARABINE [Suspect]
     Active Substance: FLUDARABINE PHOSPHATE
     Indication: CHRONIC LYMPHOCYTIC LEUKAEMIA
     Route: 065
     Dates: start: 20141118, end: 20150407
  27. FLUDARABINE [Suspect]
     Active Substance: FLUDARABINE PHOSPHATE
     Dosage: 25 MG/M2
     Route: 042
     Dates: start: 20150313
  28. CYCLOPHOSPHAMID [Suspect]
     Active Substance: CYCLOPHOSPHAMIDE
     Route: 042
     Dates: start: 20141118
  29. GAZYVARO [Suspect]
     Active Substance: OBINUTUZUMAB
     Route: 042
     Dates: start: 201502
  30. FLUDARABINE [Suspect]
     Active Substance: FLUDARABINE PHOSPHATE
     Dosage: 25 MG/M2
     Route: 042
     Dates: start: 20141118
  31. FLUDARABINE [Suspect]
     Active Substance: FLUDARABINE PHOSPHATE
     Route: 042
     Dates: start: 20150114
  32. DEKRISTOL [Concomitant]
     Active Substance: CHOLECALCIFEROL
  33. GAZYVARO [Suspect]
     Active Substance: OBINUTUZUMAB
     Indication: CHRONIC LYMPHOCYTIC LEUKAEMIA
     Route: 042
     Dates: start: 20141118, end: 20150407
  34. URSOFALK [Suspect]
     Active Substance: URSODIOL
     Indication: DRUG-INDUCED LIVER INJURY
     Route: 065
     Dates: start: 201602, end: 201603
  35. PANTOPRAZOL [Concomitant]
     Active Substance: PANTOPRAZOLE SODIUM
  36. DEKRISTOL [Concomitant]
     Active Substance: CHOLECALCIFEROL

REACTIONS (47)
  - Toxoplasmosis [Recovered/Resolved with Sequelae]
  - Pneumonia [Unknown]
  - Neutropenia [Unknown]
  - Blepharospasm [Recovered/Resolved]
  - Hemiparesis [Recovering/Resolving]
  - Colitis [Recovered/Resolved]
  - Nausea [Unknown]
  - Folliculitis [Unknown]
  - Drug-induced liver injury [Not Recovered/Not Resolved]
  - Epilepsy [Not Recovered/Not Resolved]
  - Respiratory failure [Unknown]
  - Necrotising retinitis [Unknown]
  - Gallbladder polyp [Unknown]
  - Cough [Recovered/Resolved]
  - Nephropathy toxic [Unknown]
  - Liver function test increased [Not Recovered/Not Resolved]
  - Weight decreased [Not Recovered/Not Resolved]
  - Pain [Unknown]
  - Cytopenia [Unknown]
  - Retinitis viral [Recovered/Resolved]
  - Febrile neutropenia [Unknown]
  - Varicella zoster virus infection [Recovered/Resolved]
  - Drug hypersensitivity [Unknown]
  - Diarrhoea [Recovered/Resolved]
  - Mucosal disorder [Unknown]
  - Blood pressure increased [Recovered/Resolved]
  - Dizziness [Unknown]
  - Abdominal pain [Unknown]
  - Ill-defined disorder [Unknown]
  - Encephalitis [Unknown]
  - Pruritus allergic [Unknown]
  - Basal cell carcinoma [Not Recovered/Not Resolved]
  - Leukopenia [Unknown]
  - Fungal infection [Unknown]
  - Large intestinal stenosis [Recovered/Resolved]
  - Blindness unilateral [Not Recovered/Not Resolved]
  - Pyrexia [Recovered/Resolved]
  - Syncope [Unknown]
  - Abdominal pain upper [Unknown]
  - Rectal tenesmus [Unknown]
  - Impulse-control disorder [Recovered/Resolved]
  - Dermatitis atopic [Unknown]
  - Myelosuppression [Unknown]
  - Hypersensitivity [Recovered/Resolved]
  - Cataract subcapsular [Unknown]
  - Central nervous system lesion [Not Recovered/Not Resolved]
  - Bacterial disease carrier [Unknown]

NARRATIVE: CASE EVENT DATE: 201503
